FAERS Safety Report 23542781 (Version 2)
Quarter: 2024Q1

REPORT INFORMATION
  Report Type: Spontaneous
  Country: US (occurrence: US)
  Receive Date: 20240220
  Receipt Date: 20240228
  Transmission Date: 20240410
  Serious: Yes (Other)
  Sender: FDA-Public Use
  Company Number: US-BIOGEN-2024BI01250468

PATIENT
  Age: 30 Year
  Sex: Female

DRUGS (1)
  1. SKYCLARYS [Suspect]
     Active Substance: OMAVELOXOLONE
     Indication: Friedreich^s ataxia
     Route: 050
     Dates: start: 20231026

REACTIONS (5)
  - Diabetes mellitus [Unknown]
  - Blood glucose decreased [Unknown]
  - Intentional dose omission [Unknown]
  - Ear infection [Unknown]
  - Rhinitis [Unknown]

NARRATIVE: CASE EVENT DATE: 20240205
